FAERS Safety Report 16619086 (Version 1)
Quarter: 2019Q3

REPORT INFORMATION
  Report Type: Spontaneous
  Country: BE (occurrence: BE)
  Receive Date: 20190723
  Receipt Date: 20190723
  Transmission Date: 20191004
  Serious: Yes (Hospitalization)
  Sender: FDA-Public Use
  Company Number: BE-BAUSCH-BL-2019-020370

PATIENT
  Age: 8 Year
  Sex: Male

DRUGS (2)
  1. DECAPEPTYL SR 11.25MG [Suspect]
     Active Substance: TRIPTORELIN PAMOATE
     Indication: PRECOCIOUS PUBERTY
     Route: 030
     Dates: end: 201903
  2. HYDROCORTISONE. [Suspect]
     Active Substance: HYDROCORTISONE
     Indication: PRECOCIOUS PUBERTY
     Dosage: FREQUENCY: EVERYDAY
     Route: 065

REACTIONS (5)
  - Weight decreased [Unknown]
  - Oesophagitis [Unknown]
  - Hypophagia [Unknown]
  - Pallor [Unknown]
  - Asthenia [Unknown]

NARRATIVE: CASE EVENT DATE: 201901
